FAERS Safety Report 10560093 (Version 6)
Quarter: 2015Q2

REPORT INFORMATION
  Report Type: Spontaneous
  Country: US (occurrence: US)
  Receive Date: 20141103
  Receipt Date: 20150529
  Transmission Date: 20150821
  Serious: Yes (Congenital Anomaly)
  Sender: FDA-Public Use
  Company Number: US-ELI_LILLY_AND_COMPANY-US201407002853

PATIENT
  Age: 2 Year
  Sex: Female

DRUGS (4)
  1. PENICILLIN G                       /00000901/ [Concomitant]
     Active Substance: PENICILLIN G
     Route: 064
  2. PROZAC [Suspect]
     Active Substance: FLUOXETINE HYDROCHLORIDE
     Dosage: 20 MG, UNKNOWN
     Route: 064
  3. ZOLOFT [Concomitant]
     Active Substance: SERTRALINE HYDROCHLORIDE
     Route: 064
  4. PROZAC [Suspect]
     Active Substance: FLUOXETINE HYDROCHLORIDE
     Indication: PRODUCT USED FOR UNKNOWN INDICATION
     Dosage: 1 DF, UNKNOWN
     Route: 064

REACTIONS (8)
  - Ventricular septal defect [Unknown]
  - Coarctation of the aorta [Unknown]
  - Left ventricular hypertrophy [Unknown]
  - Foetal exposure during pregnancy [Recovered/Resolved]
  - Procedural hypertension [Recovered/Resolved]
  - Bicuspid aortic valve [Not Recovered/Not Resolved]
  - Mitral valve stenosis [Recovering/Resolving]
  - Atrial septal defect [Unknown]

NARRATIVE: CASE EVENT DATE: 20090825
